FAERS Safety Report 6270350-5 (Version None)
Quarter: 2009Q3

REPORT INFORMATION
  Report Type: 
  Country: None (occurrence: None)
  Receive Date: 20090716
  Receipt Date: 20090708
  Transmission Date: 20100115
  Serious: Yes (Hospitalization)
  Sender: FDA-Public Use
  Company Number: B0576473A

PATIENT
  Sex: Female
  Weight: 68.4 kg

DRUGS (2)
  1. LAPATINIB [Suspect]
     Dosage: 1250MG PER DAY
     Route: 048
     Dates: start: 20070706
  2. CAPECITABINE [Suspect]
     Dosage: 750MGM2 PER DAY
     Route: 048
     Dates: start: 20070706, end: 20071210

REACTIONS (4)
  - APHASIA [None]
  - CONFUSIONAL STATE [None]
  - METASTASES TO CENTRAL NERVOUS SYSTEM [None]
  - TRANSIENT ISCHAEMIC ATTACK [None]
